FAERS Safety Report 13355508 (Version 1)
Quarter: 2017Q1

REPORT INFORMATION
  Report Type: Spontaneous
  Country: DE (occurrence: DE)
  Receive Date: 20170321
  Receipt Date: 20170321
  Transmission Date: 20170429
  Serious: Yes (Congenital Anomaly)
  Sender: FDA-Public Use
  Company Number: DE-ELI_LILLY_AND_COMPANY-DE201703003523

PATIENT
  Age: 28 Day
  Sex: Female
  Weight: 2.86 kg

DRUGS (12)
  1. STRATTERA [Suspect]
     Active Substance: ATOMOXETINE HYDROCHLORIDE
     Dosage: 80 MG, QD
     Route: 064
  2. L-THYROXIN [Concomitant]
     Active Substance: LEVOTHYROXINE SODIUM
     Indication: HYPOTHYROIDISM
     Dosage: 50 UG, UNKNOWN
     Route: 064
     Dates: start: 20151107
  3. CYTOTEC [Concomitant]
     Active Substance: MISOPROSTOL
     Indication: LABOUR INDUCTION
     Dosage: UNK, UNKNOWN
     Route: 064
     Dates: start: 20160815, end: 20160815
  4. L-THYROXIN [Concomitant]
     Active Substance: LEVOTHYROXINE SODIUM
     Dosage: 75 UG, UNKNOWN
     Route: 064
     Dates: start: 20151107
  5. FEMIBION 1 [Concomitant]
     Indication: PROPHYLAXIS OF NEURAL TUBE DEFECT
     Dosage: UNK, UNKNOWN
     Route: 064
  6. L-THYROXIN [Concomitant]
     Active Substance: LEVOTHYROXINE SODIUM
     Indication: HYPOTHYROIDISM
     Dosage: 50 UG, UNKNOWN
     Route: 064
     Dates: start: 20151107
  7. L-THYROXIN [Concomitant]
     Active Substance: LEVOTHYROXINE SODIUM
     Dosage: 75 UG, UNKNOWN
     Route: 064
     Dates: start: 20151107
  8. FEMIBION 1 [Concomitant]
     Indication: PROPHYLAXIS OF NEURAL TUBE DEFECT
     Dosage: UNK, UNKNOWN
     Route: 064
  9. CYTOTEC [Concomitant]
     Active Substance: MISOPROSTOL
     Indication: LABOUR INDUCTION
     Dosage: UNK, UNKNOWN
     Route: 064
     Dates: start: 20160815, end: 20160815
  10. STRATTERA [Suspect]
     Active Substance: ATOMOXETINE HYDROCHLORIDE
     Dosage: 80 MG, QD
     Route: 064
  11. PARACETAMOL [Concomitant]
     Active Substance: ACETAMINOPHEN
     Indication: HEADACHE
     Dosage: 500 MG, UNKNOWN
     Route: 064
  12. PARACETAMOL [Concomitant]
     Active Substance: ACETAMINOPHEN
     Indication: HEADACHE
     Dosage: 500 MG, UNKNOWN
     Route: 064

REACTIONS (5)
  - Foetal exposure during pregnancy [Unknown]
  - Small for dates baby [Unknown]
  - Ventricular septal defect [Recovered/Resolved with Sequelae]
  - Congenital aortic anomaly [Recovered/Resolved with Sequelae]
  - Pulmonary artery atresia [Recovered/Resolved with Sequelae]
